FAERS Safety Report 9234999 (Version 1)
Quarter: 2013Q2

REPORT INFORMATION
  Report Type: Spontaneous
  Country: US (occurrence: US)
  Receive Date: 20130416
  Receipt Date: 20130416
  Transmission Date: 20140414
  Serious: No
  Sender: FDA-Public Use
  Company Number: US-BAYER-2013-047850

PATIENT
  Age: 50 Year
  Sex: Female
  Weight: 53.52 kg

DRUGS (1)
  1. ALEVE GELCAPS [Suspect]
     Indication: ARTHRITIS
     Dosage: 1 DF, QD
     Route: 048
     Dates: start: 201303, end: 201303

REACTIONS (1)
  - Abdominal discomfort [Recovered/Resolved]
